FAERS Safety Report 7197391-8 (Version None)
Quarter: 2010Q4

REPORT INFORMATION
  Report Type: 
  Country: None (occurrence: None)
  Receive Date: 20101227
  Receipt Date: 20101213
  Transmission Date: 20110411
  Serious: Yes (Other)
  Sender: FDA-Public Use
  Company Number: FR-JNJFOC-20101207154

PATIENT
  Age: 86 Year
  Sex: Female

DRUGS (2)
  1. IXPRIM [Suspect]
     Indication: PAIN
     Route: 048
  2. TOPALGIC [Suspect]
     Indication: PAIN
     Route: 048

REACTIONS (3)
  - FALL [None]
  - MUSCULAR WEAKNESS [None]
  - VERTIGO [None]
